FAERS Safety Report 15171505 (Version 1)
Quarter: 2018Q3

REPORT INFORMATION
  Report Type: Spontaneous
  Country: US (occurrence: US)
  Receive Date: 20180622
  Receipt Date: 20180622
  Transmission Date: 20181010
  Serious: No
  Sender: FDA-Public Use
  Company Number: None

PATIENT
  Age: 52 Year
  Sex: Female
  Weight: 61.2 kg

DRUGS (3)
  1. IMIQUIMOD 5% CREAM PACKET (GENERIC FOR ALDARA) [Suspect]
     Active Substance: IMIQUIMOD
     Indication: BASAL CELL CARCINOMA
     Dosage: QUANTITY:.25 GRAM;?
     Route: 061
     Dates: start: 20180530, end: 20180622
  2. IBUPROFEN. [Concomitant]
     Active Substance: IBUPROFEN
  3. PRAVASTATIN. [Concomitant]
     Active Substance: PRAVASTATIN

REACTIONS (6)
  - Arthralgia [None]
  - Groin pain [None]
  - Basal cell carcinoma [None]
  - Pain in extremity [None]
  - Headache [None]
  - Influenza like illness [None]

NARRATIVE: CASE EVENT DATE: 20180616
